FAERS Safety Report 9798235 (Version 1)
Quarter: 2014Q1

REPORT INFORMATION
  Report Type: Spontaneous
  Country: US (occurrence: None)
  Receive Date: 20140102
  Receipt Date: 20140102
  Transmission Date: 20141002
  Serious: Yes (Life-Threatening, Hospitalization)
  Sender: FDA-Public Use
  Company Number: None

PATIENT
  Age: 63 Year
  Sex: Male

DRUGS (3)
  1. FLUCONAZOLE [Suspect]
     Indication: EVIDENCE BASED TREATMENT
     Dosage: AM
     Route: 048
     Dates: start: 20131216, end: 20131229
  2. FLUCONAZOLE [Suspect]
     Indication: ENDOCARDITIS
     Dosage: AM
     Route: 048
     Dates: start: 20131216, end: 20131229
  3. CLARITHROMYCIN [Suspect]
     Indication: HELICOBACTER INFECTION
     Route: 048
     Dates: start: 20131219, end: 20131226

REACTIONS (3)
  - Pulseless electrical activity [None]
  - Cardiac arrest [None]
  - Drug interaction [None]
